FAERS Safety Report 9780631 (Version 3)
Quarter: 2014Q1

REPORT INFORMATION
  Report Type: Report from Study
  Country: US (occurrence: US)
  Receive Date: 20131224
  Receipt Date: 20140122
  Transmission Date: 20141002
  Serious: Yes (Hospitalization)
  Sender: FDA-Public Use
  Company Number: US-JNJFOC-20131213005

PATIENT
  Age: 19 Year
  Sex: Male
  Weight: 63 kg

DRUGS (6)
  1. REMICADE [Suspect]
     Indication: INFLAMMATORY BOWEL DISEASE
     Route: 042
     Dates: start: 20130504, end: 20130515
  2. ABILIFY [Concomitant]
     Route: 065
     Dates: end: 20131210
  3. SYNTHROID [Concomitant]
     Route: 065
     Dates: end: 20131210
  4. MULTIVITAMINS [Concomitant]
     Route: 065
     Dates: end: 20131210
  5. PROBIOTICS [Concomitant]
     Route: 065
     Dates: end: 20131210
  6. FLAGYL [Concomitant]
     Route: 065
     Dates: end: 20131210

REACTIONS (1)
  - Affective disorder [Recovered/Resolved]
